FAERS Safety Report 9685629 (Version 1)
Quarter: 2013Q4

REPORT INFORMATION
  Report Type: Spontaneous
  Country: US (occurrence: US)
  Receive Date: 20131113
  Receipt Date: 20131113
  Transmission Date: 20140711
  Serious: No
  Sender: FDA-Public Use
  Company Number: US-GLAXOSMITHKLINE-A1022693A

PATIENT
  Age: 78 Year
  Sex: Female
  Weight: 90 kg

DRUGS (5)
  1. COREG [Suspect]
     Indication: HEART RATE DECREASED
     Dosage: 6.25MG TWICE PER DAY
     Route: 048
     Dates: start: 2004
  2. XALATAN [Suspect]
     Indication: EYE DISORDER
     Dosage: 1DROP PER DAY
     Route: 047
  3. LOSARTAN POTASSIUM [Suspect]
     Indication: HYPERTENSION
     Dates: start: 20120402
  4. OMEPRAZOLE [Concomitant]
     Indication: GASTROOESOPHAGEAL REFLUX DISEASE
  5. LASIX [Concomitant]
     Indication: OEDEMA

REACTIONS (2)
  - Pain in extremity [Recovering/Resolving]
  - Rotator cuff syndrome [Recovering/Resolving]
